FAERS Safety Report 24036955 (Version 2)
Quarter: 2024Q3

REPORT INFORMATION
  Report Type: Spontaneous
  Country: ES (occurrence: ES)
  Receive Date: 20240701
  Receipt Date: 20240709
  Transmission Date: 20241017
  Serious: Yes (Life-Threatening, Hospitalization, Other)
  Sender: MYLAN
  Company Number: ES-009507513-2406ESP006163

PATIENT
  Age: 55 Year
  Sex: Female

DRUGS (23)
  1. PACLITAXEL [Suspect]
     Active Substance: PACLITAXEL
     Indication: Triple negative breast cancer
     Dosage: 80 MILLIGRAM/SQ. METER
     Route: 065
     Dates: start: 20220701, end: 20220817
  2. PACLITAXEL [Suspect]
     Active Substance: PACLITAXEL
     Dosage: UNK
     Route: 065
     Dates: start: 20220907, end: 20220907
  3. ADRIAMYCIN [Suspect]
     Active Substance: DOXORUBICIN HYDROCHLORIDE
     Indication: Triple negative breast cancer
     Dosage: C1D1
     Route: 065
     Dates: start: 20220929, end: 20220929
  4. ADRIAMYCIN [Suspect]
     Active Substance: DOXORUBICIN HYDROCHLORIDE
     Dosage: 80 PERCENT DOSE REDUCTION
     Route: 065
     Dates: start: 20221021, end: 20221021
  5. ADRIAMYCIN [Suspect]
     Active Substance: DOXORUBICIN HYDROCHLORIDE
     Dosage: UNK
     Route: 065
     Dates: start: 20221118, end: 20221118
  6. CARBOPLATIN [Suspect]
     Active Substance: CARBOPLATIN
     Indication: Triple negative breast cancer
     Dosage: AREA UNDER THE CURVE (AUC) 1-5
     Route: 065
     Dates: start: 20220701
  7. PEMBROLIZUMAB [Suspect]
     Active Substance: PEMBROLIZUMAB
     Indication: Triple negative breast cancer
     Dosage: 200 MILLIGRAM, Q3W
     Route: 065
     Dates: start: 20220701, end: 20230905
  8. PEMBROLIZUMAB [Suspect]
     Active Substance: PEMBROLIZUMAB
     Dosage: 200 MILLIGRAM, Q3W
     Route: 065
     Dates: start: 20221021, end: 20221021
  9. PEMBROLIZUMAB [Suspect]
     Active Substance: PEMBROLIZUMAB
     Dosage: 200 MILLIGRAM, Q3W
     Route: 065
     Dates: start: 20220929, end: 20220929
  10. PEMBROLIZUMAB [Suspect]
     Active Substance: PEMBROLIZUMAB
     Dosage: UNK UNK, Q3W
     Route: 065
     Dates: start: 20221118, end: 20221118
  11. PEMBROLIZUMAB [Suspect]
     Active Substance: PEMBROLIZUMAB
     Dosage: 200 MILLIGRAM, Q3W,C1D1OF ADJUVANT
     Route: 065
     Dates: start: 20230227, end: 20230227
  12. PEMBROLIZUMAB [Suspect]
     Active Substance: PEMBROLIZUMAB
     Dosage: ADJUVANT C2D1,Q3W
     Route: 065
     Dates: start: 20230320, end: 20230320
  13. PEMBROLIZUMAB [Suspect]
     Active Substance: PEMBROLIZUMAB
     Dosage: Q3W,ADJUVANT  C3D1
     Route: 065
     Dates: start: 20230411, end: 20230411
  14. PEMBROLIZUMAB [Suspect]
     Active Substance: PEMBROLIZUMAB
     Dosage: Q3W, ADJUVANT  C4D1
     Route: 065
     Dates: start: 20230502, end: 20230502
  15. PEMBROLIZUMAB [Suspect]
     Active Substance: PEMBROLIZUMAB
     Dosage: UNK UNK, Q3W
     Route: 065
     Dates: start: 20230523, end: 20230523
  16. PEMBROLIZUMAB [Suspect]
     Active Substance: PEMBROLIZUMAB
     Dosage: UNK UNK, Q3W
     Route: 065
     Dates: start: 20230613, end: 20230613
  17. PEMBROLIZUMAB [Suspect]
     Active Substance: PEMBROLIZUMAB
     Dosage: Q3W, ADJUVANT C7D1
     Route: 065
     Dates: start: 20230705, end: 20230705
  18. PEMBROLIZUMAB [Suspect]
     Active Substance: PEMBROLIZUMAB
     Dosage: Q3W, ADJUVANT C8D1
     Route: 065
     Dates: start: 20230725, end: 20230725
  19. PEMBROLIZUMAB [Suspect]
     Active Substance: PEMBROLIZUMAB
     Dosage: Q3W, ADJUVANT C9D1
     Route: 065
     Dates: start: 20230815, end: 20230815
  20. PEMBROLIZUMAB [Suspect]
     Active Substance: PEMBROLIZUMAB
     Dosage: UNK UNK, Q3W
     Route: 065
     Dates: start: 20230905, end: 20230905
  21. CYCLOPHOSPHAMIDE [Suspect]
     Active Substance: CYCLOPHOSPHAMIDE
     Indication: Triple negative breast cancer
     Dosage: C1D1
     Route: 065
     Dates: start: 20220929, end: 20220929
  22. CYCLOPHOSPHAMIDE [Suspect]
     Active Substance: CYCLOPHOSPHAMIDE
     Dosage: 80% DOSE REDUCTION
     Route: 065
     Dates: start: 20221021, end: 20221021
  23. CYCLOPHOSPHAMIDE [Suspect]
     Active Substance: CYCLOPHOSPHAMIDE
     Dosage: C3
     Route: 065
     Dates: start: 20221118, end: 20221118

REACTIONS (19)
  - Febrile neutropenia [Unknown]
  - Tubulointerstitial nephritis [Unknown]
  - Peptic ulcer [Unknown]
  - Clostridium difficile colitis [Unknown]
  - Acute kidney injury [Unknown]
  - Dry mouth [Unknown]
  - Asthenia [Unknown]
  - Arthralgia [Unknown]
  - Pyrexia [Unknown]
  - Thyroiditis [Unknown]
  - Gait disturbance [Unknown]
  - Goitre [Unknown]
  - Thyroglobulin present [Unknown]
  - Anti-thyroid antibody positive [Unknown]
  - Blood thyroid stimulating hormone abnormal [Unknown]
  - Nausea [Unknown]
  - Headache [Unknown]
  - Therapy partial responder [Unknown]
  - Inappropriate schedule of product administration [Unknown]

NARRATIVE: CASE EVENT DATE: 20220706
